FAERS Safety Report 6042254-4 (Version None)
Quarter: 2009Q1

REPORT INFORMATION
  Report Type: 
  Country: None (occurrence: None)
  Receive Date: 20090116
  Receipt Date: 20090115
  Transmission Date: 20090719
  Serious: Yes (Death)
  Sender: FDA-Public Use
  Company Number: CA-ASTRAZENECA-2009UW01267

PATIENT
  Age: 87 Year
  Sex: Female

DRUGS (6)
  1. SEROQUEL [Suspect]
     Route: 048
  2. COUMADIN [Suspect]
     Route: 048
  3. ADALAT CC [Concomitant]
     Route: 048
  4. AVAPRO [Concomitant]
     Route: 048
  5. TENORMIN [Concomitant]
     Route: 048
  6. VITAMIN K [Concomitant]
     Route: 048

REACTIONS (13)
  - ANGIOPATHY [None]
  - ATRIAL FIBRILLATION [None]
  - BLOOD PRESSURE INCREASED [None]
  - COAGULOPATHY [None]
  - DECREASED APPETITE [None]
  - GAIT DISTURBANCE [None]
  - GASTROINTESTINAL MOTILITY DISORDER [None]
  - HEART RATE IRREGULAR [None]
  - INTERNATIONAL NORMALISED RATIO INCREASED [None]
  - IRRITABILITY [None]
  - PROTHROMBIN TIME PROLONGED [None]
  - SOMNOLENCE [None]
  - SYNCOPE [None]
